FAERS Safety Report 13895091 (Version 1)
Quarter: 2017Q3

REPORT INFORMATION
  Report Type: Spontaneous
  Country: US (occurrence: US)
  Receive Date: 20170817
  Receipt Date: 20170817
  Transmission Date: 20171127
  Serious: Yes (Other)
  Sender: FDA-Public Use
  Company Number: None

PATIENT
  Age: 69 Year
  Sex: Female

DRUGS (1)
  1. BYDUREON [Suspect]
     Active Substance: EXENATIDE
     Indication: DIABETES MELLITUS
     Dosage: ?          QUANTITY:1 INJECTION(S);OTHER FREQUENCY:WEEKLY;?
     Route: 058
     Dates: start: 20170705, end: 20170816

REACTIONS (8)
  - Dizziness [None]
  - Injection site pruritus [None]
  - Feeling abnormal [None]
  - Eating disorder [None]
  - Injection site irritation [None]
  - Blood glucose decreased [None]
  - Injection site inflammation [None]
  - Scratch [None]

NARRATIVE: CASE EVENT DATE: 20170705
